FAERS Safety Report 8088680-3 (Version None)
Quarter: 2012Q1

REPORT INFORMATION
  Report Type: 
  Country: None (occurrence: None)
  Receive Date: 20120128
  Receipt Date: 20110412
  Transmission Date: 20120608
  Serious: No
  Sender: FDA-Public Use
  Company Number: US-ABBOTT-11P-163-0718589-00

PATIENT
  Age: 34 Year
  Sex: Female

DRUGS (2)
  1. HUMIRA [Suspect]
     Indication: PSORIASIS
     Dates: start: 20110329
  2. DEPO-PROVERA [Concomitant]
     Indication: CONTRACEPTION
     Route: 050

REACTIONS (4)
  - NASOPHARYNGITIS [None]
  - RHINORRHOEA [None]
  - SINUSITIS [None]
  - NASAL CONGESTION [None]
